FAERS Safety Report 4352351-7 (Version None)
Quarter: 2004Q2

REPORT INFORMATION
  Report Type: 
  Country: None (occurrence: None)
  Receive Date: 20040427
  Receipt Date: 20030904
  Transmission Date: 20050107
  Serious: Yes (Hospitalization)
  Sender: FDA-Public Use
  Company Number: WAES 0309USA00567

PATIENT
  Age: 66 Year
  Sex: Male
  Weight: 74.8435 kg

DRUGS (6)
  1. SINGULAIR [Suspect]
     Indication: EMPHYSEMA
     Dosage: 10 MG/DAILY/PO
     Route: 048
     Dates: start: 20010101
  2. ATROVENT [Concomitant]
  3. SYNTHROID [Concomitant]
  4. ZYRTEC [Concomitant]
  5. ALBUTEROL [Concomitant]
  6. PREDNISONE [Concomitant]

REACTIONS (4)
  - CHEST X-RAY ABNORMAL [None]
  - MUSCLE CRAMP [None]
  - MUSCLE TWITCHING [None]
  - UPPER RESPIRATORY TRACT INFECTION [None]
